FAERS Safety Report 5847754-5 (Version None)
Quarter: 2008Q3

REPORT INFORMATION
  Report Type: 
  Country: None (occurrence: None)
  Receive Date: 20080814
  Receipt Date: 20080814
  Transmission Date: 20090109
  Serious: No
  Sender: FDA-Public Use
  Company Number: None

PATIENT
  Age: 24 Year
  Sex: Male
  Weight: 63.5036 kg

DRUGS (3)
  1. OXCARBAZEPINE [Suspect]
     Indication: CONVULSION
     Dosage: 300 MG 2 TID PO
     Route: 048
     Dates: start: 20080201, end: 20080624
  2. TOPAMAX [Concomitant]
  3. TRANXENE [Concomitant]

REACTIONS (2)
  - EPILEPSY [None]
  - PHARMACEUTICAL PRODUCT COMPLAINT [None]
